FAERS Safety Report 5063688-0 (Version None)
Quarter: 2006Q3

REPORT INFORMATION
  Report Type: 
  Country: None (occurrence: None)
  Receive Date: 20060724
  Receipt Date: 20060713
  Transmission Date: 20061208
  Serious: Yes (Other)
  Sender: FDA-Public Use
  Company Number: 14402

PATIENT
  Sex: Male
  Weight: 2 kg

DRUGS (9)
  1. DIAZEPAM [Suspect]
     Dosage: 17.5 MG OTH TL
  2. HALOPERIDOL [Suspect]
     Dosage: 16.5 MG OTH TL
  3. HEPARIN [Suspect]
  4. BETAMETHASONE [Suspect]
  5. BUDESONIDE [Suspect]
  6. FENOTEROLHYDROBROMID [Suspect]
  7. LEVOMEPROMAZIN [Suspect]
     Dosage: 50 MG OTH TL
  8. PREDNISOLONE [Suspect]
     Dosage: 10 MG QD TL
  9. TERBUTALINE SULFATE [Suspect]

REACTIONS (25)
  - ABNORMAL BEHAVIOUR [None]
  - AGGRESSION [None]
  - APGAR SCORE LOW [None]
  - AUTISM [None]
  - BRADYCARDIA NEONATAL [None]
  - CAESAREAN SECTION [None]
  - DRUG EXPOSURE DURING PREGNANCY [None]
  - EYE ROLLING [None]
  - FOETAL GROWTH RETARDATION [None]
  - GLIOSIS [None]
  - INTELLIGENCE TEST ABNORMAL [None]
  - MECONIUM INCREASED [None]
  - MICROPHTHALMOS [None]
  - NEONATAL ASPIRATION [None]
  - NYSTAGMUS [None]
  - PERIVENTRICULAR LEUKOMALACIA [None]
  - PLACENTAL DISORDER [None]
  - PSYCHOMOTOR SKILLS IMPAIRED [None]
  - PUPILLARY REFLEX IMPAIRED [None]
  - RESPIRATORY DISORDER NEONATAL [None]
  - RETINAL DETACHMENT [None]
  - RETINOPATHY OF PREMATURITY [None]
  - SOCIAL AVOIDANT BEHAVIOUR [None]
  - STEREOTYPIC MOVEMENT DISORDER [None]
  - VISUAL DISTURBANCE [None]
